FAERS Safety Report 6591888-7 (Version None)
Quarter: 2010Q1

REPORT INFORMATION
  Report Type: 
  Country: None (occurrence: None)
  Receive Date: 20100221
  Receipt Date: 20090626
  Transmission Date: 20100710
  Serious: No
  Sender: FDA-Public Use
  Company Number: US-ALLERGAN-0909046US

PATIENT
  Age: 61 Year
  Sex: Female

DRUGS (2)
  1. BOTOX COSMETIC [Suspect]
     Indication: HYPERHIDROSIS
     Dosage: 100 UNITS, SINGLE
     Route: 023
     Dates: start: 20090501, end: 20090501
  2. BOTOX COSMETIC [Suspect]
     Dosage: 100 UNITS, SINGLE
     Route: 023
     Dates: start: 20090522, end: 20090522

REACTIONS (1)
  - THERAPEUTIC RESPONSE DECREASED [None]
